FAERS Safety Report 5603769-3 (Version None)
Quarter: 2008Q1

REPORT INFORMATION
  Report Type: 
  Country: None (occurrence: None)
  Receive Date: 20080122
  Receipt Date: 20071113
  Transmission Date: 20080703
  Serious: Yes (Other)
  Sender: FDA-Public Use
  Company Number: US021724

PATIENT
  Age: 35 Year
  Sex: Female

DRUGS (1)
  1. PROVIGIL [Suspect]
     Dosage: 200 MG ORAL
     Route: 048

REACTIONS (3)
  - AGITATION [None]
  - IRRITABILITY [None]
  - SUICIDE ATTEMPT [None]
